FAERS Safety Report 5318583-6 (Version None)
Quarter: 2007Q1

REPORT INFORMATION
  Report Type: 
  Country: None (occurrence: None)
  Receive Date: 20070201
  Receipt Date: 20060313
  Transmission Date: 20070707
  Serious: Yes (Other)
  Sender: FDA-Public Use
  Company Number: 2006038897

PATIENT
  Age: 55 Year
  Sex: Male
  Weight: 73.9363 kg

DRUGS (4)
  1. EMCYT [Suspect]
     Indication: PROSTATE CANCER
     Dosage: 420 MG (140 MG, 3 IN 1 D)
     Dates: start: 20060201
  2. KETOCONAZOLE [Concomitant]
  3. VINBLASTINE SULFATE [Concomitant]
  4. DOXORUBICIN HCL [Concomitant]

REACTIONS (1)
  - LIVER FUNCTION TEST ABNORMAL [None]
